FAERS Safety Report 20456743 (Version 2)
Quarter: 2022Q4

REPORT INFORMATION
  Report Type: Spontaneous
  Country: US (occurrence: US)
  Receive Date: 20220210
  Receipt Date: 20221109
  Transmission Date: 20230113
  Serious: No
  Sender: FDA-Public Use
  Company Number: US-009507513-2202USA002175

PATIENT
  Sex: Female
  Weight: 44.444 kg

DRUGS (7)
  1. KEYTRUDA [Suspect]
     Active Substance: PEMBROLIZUMAB
     Indication: Endometrial cancer
  2. LENVATINIB MESYLATE [Suspect]
     Active Substance: LENVATINIB MESYLATE
     Indication: Endometrial cancer
     Dosage: 12 MILLIGRAM
     Route: 048
     Dates: end: 20220129
  3. LENVATINIB MESYLATE [Suspect]
     Active Substance: LENVATINIB MESYLATE
     Dosage: 8 MILLIGRAM
     Route: 048
     Dates: start: 2022, end: 2022
  4. LENVATINIB MESYLATE [Suspect]
     Active Substance: LENVATINIB MESYLATE
     Dosage: 4 MILLIGRAM
     Route: 048
     Dates: start: 202207
  5. ZOLOFT [Suspect]
     Active Substance: SERTRALINE HYDROCHLORIDE
  6. ACETAMINOPHEN\CAFFEINE [Concomitant]
     Active Substance: ACETAMINOPHEN\CAFFEINE
  7. TUMS CHEWIES [Concomitant]

REACTIONS (10)
  - Hypertension [Unknown]
  - Fatigue [Unknown]
  - Abdominal pain upper [Recovered/Resolved]
  - Rash [Recovered/Resolved]
  - Stomatitis [Recovered/Resolved]
  - Headache [Recovered/Resolved]
  - Chills [Recovered/Resolved]
  - Body temperature decreased [Recovered/Resolved]
  - Oral mucosal roughening [Recovered/Resolved]
  - Diarrhoea [Recovered/Resolved]
